FAERS Safety Report 15388276 (Version 5)
Quarter: 2018Q4

REPORT INFORMATION
  Report Type: Report from Study
  Country: US (occurrence: US)
  Receive Date: 20180915
  Receipt Date: 20181006
  Transmission Date: 20190204
  Serious: Yes (Death, Hospitalization, Other)
  Sender: FDA-Public Use
  Company Number: US-AMGEN-USASP2018128035

PATIENT
  Age: 74 Year
  Sex: Male

DRUGS (6)
  1. AIMOVIG [Suspect]
     Active Substance: ERENUMAB-AOOE
     Indication: MIGRAINE WITHOUT AURA
     Dosage: 70 MG, QMO
     Route: 058
     Dates: start: 20180703
  2. NADOLOL. [Concomitant]
     Active Substance: NADOLOL
     Indication: PROPHYLAXIS
     Dosage: 60 MG, QD
  3. PLAVIX [Concomitant]
     Active Substance: CLOPIDOGREL BISULFATE
     Dosage: 75 MG, QD
  4. LISINOPRIL. [Concomitant]
     Active Substance: LISINOPRIL
     Dosage: 10 MG, QD
  5. ACETAMINOPHEN W/HYDROCODONE [Concomitant]
     Active Substance: ACETAMINOPHEN\HYDROCODONE
     Dosage: UNK (7.5/325 MGA 1 BID PRN)
  6. FIORICET [Concomitant]
     Active Substance: ACETAMINOPHEN\BUTALBITAL\CAFFEINE
     Indication: HEADACHE
     Dosage: UNK (1Q6HRS PRN)

REACTIONS (9)
  - Cardiac arrest [Fatal]
  - Hypertension [Unknown]
  - Rash [Unknown]
  - Cauda equina syndrome [Unknown]
  - Urinary tract infection [Unknown]
  - Back pain [Unknown]
  - Muscular weakness [Unknown]
  - Pain of skin [Unknown]
  - Leukocytosis [Unknown]

NARRATIVE: CASE EVENT DATE: 2018
